FAERS Safety Report 12889891 (Version 3)
Quarter: 2017Q3

REPORT INFORMATION
  Report Type: Spontaneous
  Country: US (occurrence: US)
  Receive Date: 20161027
  Receipt Date: 20170817
  Transmission Date: 20171127
  Serious: Yes (Other)
  Sender: FDA-Public Use
  Company Number: US-BAYER-2016-206938

PATIENT
  Age: 33 Year
  Sex: Female
  Weight: 53.06 kg

DRUGS (1)
  1. MIRENA [Suspect]
     Active Substance: LEVONORGESTREL
     Indication: CONTRACEPTION
     Dosage: 20 MCG/24HR, CONT
     Route: 015
     Dates: start: 20140811

REACTIONS (4)
  - Premature labour [None]
  - Pregnancy with contraceptive device [Recovered/Resolved]
  - Premature delivery [None]
  - Drug ineffective [Unknown]

NARRATIVE: CASE EVENT DATE: 20170324
